FAERS Safety Report 4422815-6 (Version None)
Quarter: 2004Q3

REPORT INFORMATION
  Report Type: 
  Country: None (occurrence: None)
  Receive Date: 20040810
  Receipt Date: 20040810
  Transmission Date: 20050211
  Serious: Yes (Hospitalization)
  Sender: FDA-Public Use
  Company Number: None

PATIENT
  Age: 57 Year
  Sex: Male
  Weight: 113.5 kg

DRUGS (10)
  1. INTEGRILIN [Suspect]
     Indication: ANTIPLATELET THERAPY
     Dosage: 2(10.2  ML BOLUSES) 18 ML/HR IV
     Route: 042
     Dates: start: 20040803, end: 20040804
  2. FENTANYL [Concomitant]
  3. MIDAZOLAM [Concomitant]
  4. NITROGLYCERIN [Concomitant]
  5. LOPRESSOR [Concomitant]
  6. ASPIRIN [Concomitant]
  7. CLOPIDOGREL [Concomitant]
  8. PEPCID [Concomitant]
  9. PREDNISONE [Concomitant]
  10. ACETYLCYSTEINE [Concomitant]

REACTIONS (4)
  - ECCHYMOSIS [None]
  - POST PROCEDURAL HAEMORRHAGE [None]
  - PROCEDURAL COMPLICATION [None]
  - TACHYCARDIA [None]
